FAERS Safety Report 4886341-2 (Version None)
Quarter: 2006Q1

REPORT INFORMATION
  Report Type: 
  Country: None (occurrence: None)
  Receive Date: 20060120
  Receipt Date: 20051005
  Transmission Date: 20060701
  Serious: Yes (Death, Hospitalization)
  Sender: FDA-Public Use
  Company Number: US-MERCK-0510USA04163

PATIENT
  Age: 50 Year
  Sex: Male
  Weight: 59 kg

DRUGS (5)
  1. VIOXX [Suspect]
     Indication: BLOOD DISORDER
     Route: 048
     Dates: start: 19990101, end: 20040111
  2. PENICILLIN (UNSPECIFIED) [Concomitant]
     Route: 065
  3. NEURONTIN [Concomitant]
     Route: 065
  4. TRAZODONE HYDROCHLORIDE [Concomitant]
     Route: 065
  5. CELEXA [Concomitant]
     Route: 065

REACTIONS (7)
  - CARDIOVASCULAR DISORDER [None]
  - DEPRESSION [None]
  - FUNGAEMIA [None]
  - NON-HODGKIN'S LYMPHOMA [None]
  - PNEUMONIA [None]
  - PURPURA [None]
  - SEPSIS [None]
